APPROVED DRUG PRODUCT: PANWARFIN
Active Ingredient: WARFARIN SODIUM
Strength: 7.5MG
Dosage Form/Route: TABLET;ORAL
Application: N017020 | Product #004
Applicant: ABBOTT LABORATORIES PHARMACEUTICAL PRODUCTS DIV
Approved: Approved Prior to Jan 1, 1982 | RLD: No | RS: No | Type: DISCN